FAERS Safety Report 14355032 (Version 1)
Quarter: 2018Q1

REPORT INFORMATION
  Report Type: Spontaneous
  Country: US (occurrence: US)
  Receive Date: 20180104
  Receipt Date: 20180104
  Transmission Date: 20180509
  Serious: Yes (Disabling)
  Sender: FDA-Public Use
  Company Number: None

PATIENT
  Age: 55 Year
  Sex: Male
  Weight: 76.5 kg

DRUGS (3)
  1. MIRTAZAPINE ORALLY DISINTEGRATING TABLETS, UPS 15MG [Suspect]
     Active Substance: MIRTAZAPINE
     Indication: IRRITABLE BOWEL SYNDROME
     Dosage: ?          QUANTITY:30 TABLET(S);?
     Route: 048
  2. MIRTAZAPINE ORALLY DISINTEGRATING TABLETS, UPS 15MG [Suspect]
     Active Substance: MIRTAZAPINE
     Indication: ANXIETY
     Dosage: ?          QUANTITY:30 TABLET(S);?
     Route: 048
  3. MIRTAZAPINE ORALLY DISINTEGRATING TABLETS, UPS 15MG [Suspect]
     Active Substance: MIRTAZAPINE
     Indication: INSOMNIA
     Dosage: ?          QUANTITY:30 TABLET(S);?
     Route: 048

REACTIONS (7)
  - Drug ineffective [None]
  - Anxiety [None]
  - Irritable bowel syndrome [None]
  - Product packaging issue [None]
  - Condition aggravated [None]
  - Insomnia [None]
  - Product solubility abnormal [None]

NARRATIVE: CASE EVENT DATE: 20171129
